FAERS Safety Report 8696839 (Version 5)
Quarter: 2012Q4

REPORT INFORMATION
  Report Type: 
  Country: US (occurrence: US)
  Receive Date: 20120801
  Receipt Date: 20121002
  Transmission Date: 20130627
  Serious: Yes (Other)
  Sender: FDA-Public Use
  Company Number: US-ALLERGAN-1210149US

PATIENT
  Age: 66 Year
  Sex: Male
  Weight: 81.63 kg

DRUGS (5)
  1. OZURDEX [Suspect]
     Indication: CENTRAL RETINAL VEIN OCCLUSION
     Dosage: 0.7 mg, single
     Route: 031
     Dates: start: 20120418, end: 20120418
  2. OZURDEX [Suspect]
     Indication: MACULAR EDEMA
     Dosage: 0.7 mg, single
     Route: 031
     Dates: start: 20120111, end: 20120111
  3. OZURDEX [Suspect]
     Dosage: 0.7 mg, single
     Route: 031
     Dates: start: 20111003, end: 20111003
  4. OZURDEX [Suspect]
     Dosage: 0.7 mg, single
     Route: 031
     Dates: start: 20110630, end: 20110630
  5. OZURDEX [Suspect]
     Dosage: 0.7 mg, single
     Route: 031
     Dates: start: 20101213, end: 20101213

REACTIONS (6)
  - Hypopyon [Recovering/Resolving]
  - Iritis [Unknown]
  - Visual acuity reduced [Recovering/Resolving]
  - Vitreous floaters [Recovering/Resolving]
  - Endophthalmitis [Recovered/Resolved]
  - Eye pain [Recovering/Resolving]
